FAERS Safety Report 9914444 (Version 1)
Quarter: 2014Q1

REPORT INFORMATION
  Report Type: Spontaneous
  Country: GB (occurrence: None)
  Receive Date: 20140218
  Receipt Date: 20140218
  Transmission Date: 20141002
  Serious: Yes (Other)
  Sender: FDA-Public Use
  Company Number: CL-554-2014

PATIENT
  Age: 74 Year
  Sex: Female

DRUGS (3)
  1. LEVOFLOXACIN [Suspect]
     Indication: SURGERY
     Dosage: 100MG, ONCE, 10 WEEKS
  2. LEVOFLOXACIN [Suspect]
     Indication: PROPHYLAXIS
     Dosage: 100MG, ONCE, 10 WEEKS
  3. STREPTOKINASE 10 MG [Concomitant]

REACTIONS (7)
  - Clostridium difficile colitis [None]
  - Dizziness [None]
  - Asthenia [None]
  - Aspartate aminotransferase increased [None]
  - Alanine aminotransferase increased [None]
  - Blood lactate dehydrogenase increased [None]
  - Blood creatinine increased [None]
